FAERS Safety Report 15015783 (Version 1)
Quarter: 2018Q2

REPORT INFORMATION
  Report Type: Spontaneous
  Country: DE (occurrence: DE)
  Receive Date: 20180615
  Receipt Date: 20180615
  Transmission Date: 20180711
  Serious: Yes (Other)
  Sender: FDA-Public Use
  Company Number: DE-BAYER-2017-180235

PATIENT
  Age: 40 Year
  Sex: Female
  Weight: 80.7 kg

DRUGS (2)
  1. MIRENA [Suspect]
     Active Substance: LEVONORGESTREL
     Indication: CONTRACEPTION
     Dosage: 20 MCG/24HR, CONT
     Route: 015
     Dates: start: 20121011, end: 20170915
  2. AKNENORMIN [Concomitant]
     Indication: ACNE
     Dosage: 20 MG, OW

REACTIONS (10)
  - Haemorrhage in pregnancy [None]
  - Retained placenta operation [None]
  - Postpartum haemorrhage [None]
  - Uterine haematoma [None]
  - Uterine atony [None]
  - Complication of pregnancy [None]
  - Device dislocation [None]
  - Amniotic cavity disorder [None]
  - Drug ineffective [None]
  - Pregnancy with contraceptive device [None]

NARRATIVE: CASE EVENT DATE: 2017
